FAERS Safety Report 9831798 (Version 2)
Quarter: 2014Q2

REPORT INFORMATION
  Report Type: Spontaneous
  Country: FR (occurrence: FR)
  Receive Date: 20140121
  Receipt Date: 20140417
  Transmission Date: 20141212
  Serious: Yes (Hospitalization, Other)
  Sender: FDA-Public Use
  Company Number: FR-ELI_LILLY_AND_COMPANY-FR201401004280

PATIENT
  Age: 15 Year
  Sex: Female

DRUGS (8)
  1. PROZAC [Suspect]
     Indication: DECREASED APPETITE
     Dosage: 5 ML, QD
     Route: 048
     Dates: start: 20130530
  2. PROZAC [Suspect]
     Dosage: 10 ML, QD
     Route: 048
     Dates: start: 20130605
  3. PROZAC [Suspect]
     Dosage: 15 ML, QD
     Route: 048
     Dates: start: 20130611
  4. PROZAC [Suspect]
     Dosage: 20 ML, QD
     Route: 048
     Dates: start: 20130618
  5. ATARAX                             /00058401/ [Suspect]
     Indication: ANXIETY
     Dosage: 1 DF, UNKNOWN
     Route: 048
  6. DEBRIDAT                           /00465201/ [Concomitant]
     Indication: GASTROINTESTINAL PAIN
     Dosage: 1 DF, UNKNOWN
     Route: 065
  7. VAGOSTABYL [Concomitant]
     Indication: STRESS
     Dosage: 1 DF, UNKNOWN
     Route: 065
  8. FRESUBIN [Concomitant]
     Indication: NUTRITIONAL SUPPLEMENTATION
     Dosage: 1000 ML, QD
     Route: 048
     Dates: start: 20130703

REACTIONS (1)
  - Neutropenia [Recovered/Resolved]
